FAERS Safety Report 8108247-8 (Version None)
Quarter: 2012Q1

REPORT INFORMATION
  Report Type: 
  Country: None (occurrence: None)
  Receive Date: 20120202
  Receipt Date: 20120125
  Transmission Date: 20120608
  Serious: Yes (Hospitalization, Other)
  Sender: FDA-Public Use
  Company Number: US-BAYER-2011-061789

PATIENT
  Age: 32 Year
  Sex: Female
  Weight: 68.027 kg

DRUGS (4)
  1. DROSPIRENONE AND ETHINYL ESTRADIOL [Suspect]
     Dosage: UNK
     Dates: start: 20070524
  2. NITROFUR-C [Concomitant]
     Indication: URINARY TRACT INFECTION
  3. YASMIN [Suspect]
     Dosage: UNK
     Dates: start: 20070524
  4. YAZ [Suspect]
     Dosage: UNK
     Dates: start: 20070524

REACTIONS (16)
  - CONSTIPATION [None]
  - DYSPEPSIA [None]
  - FLATULENCE [None]
  - CHOLELITHIASIS [None]
  - ANXIETY [None]
  - DEEP VEIN THROMBOSIS [None]
  - SCAR [None]
  - DEPRESSION [None]
  - ANHEDONIA [None]
  - GENERAL PHYSICAL HEALTH DETERIORATION [None]
  - DIARRHOEA [None]
  - BILIARY COLIC [None]
  - ABDOMINAL DISTENSION [None]
  - CHOLECYSTITIS CHRONIC [None]
  - BACK PAIN [None]
  - PAIN [None]
